FAERS Safety Report 25102383 (Version 1)
Quarter: 2025Q1

REPORT INFORMATION
  Report Type: Spontaneous
  Country: US (occurrence: US)
  Receive Date: 20250320
  Receipt Date: 20250320
  Transmission Date: 20250408
  Serious: No
  Sender: ABBVIE
  Company Number: US-ABBVIE-6187489

PATIENT
  Age: 34 Year
  Sex: Female

DRUGS (1)
  1. ARMOUR THYROID [Suspect]
     Active Substance: THYROID, PORCINE
     Indication: Product used for unknown indication
     Route: 048

REACTIONS (7)
  - Hypertension [Unknown]
  - Hypertension [Unknown]
  - Atrial fibrillation [Unknown]
  - Tri-iodothyronine increased [Unknown]
  - Product lot number issue [Unknown]
  - Dizziness [Unknown]
  - Product expiration date issue [Unknown]

NARRATIVE: CASE EVENT DATE: 20250101
